FAERS Safety Report 5689673-3 (Version None)
Quarter: 2008Q1

REPORT INFORMATION
  Report Type: 
  Country: None (occurrence: None)
  Receive Date: 20080328
  Receipt Date: 20080325
  Transmission Date: 20080703
  Serious: Yes (Hospitalization)
  Sender: FDA-Public Use
  Company Number: SP01856

PATIENT
  Age: 57 Year
  Sex: Female

DRUGS (4)
  1. VISICOL [Suspect]
     Indication: BOWEL PREPARATION
     Dosage: 35 GM, ORAL
     Route: 048
     Dates: start: 20070914, end: 20070914
  2. VISICOL [Suspect]
     Indication: COLONOSCOPY
     Dosage: 35 GM, ORAL
     Route: 048
     Dates: start: 20070914, end: 20070914
  3. RABEPRAZOLE SODIUM [Concomitant]
  4. URSODIOL [Concomitant]

REACTIONS (8)
  - ABDOMINAL DISTENSION [None]
  - COLD SWEAT [None]
  - COLITIS ISCHAEMIC [None]
  - COLONIC STENOSIS [None]
  - DIARRHOEA [None]
  - HAEMATOCHEZIA [None]
  - NAUSEA [None]
  - VOMITING [None]
